FAERS Safety Report 8155757-3 (Version None)
Quarter: 2012Q1

REPORT INFORMATION
  Report Type: 
  Country: None (occurrence: None)
  Receive Date: 20120222
  Receipt Date: 20120213
  Transmission Date: 20120608
  Serious: Yes (Death, Hospitalization, Other)
  Sender: FDA-Public Use
  Company Number: US-UCBSA-047076

PATIENT
  Age: 84 Year
  Sex: Male

DRUGS (18)
  1. FAMOTIDINE [Concomitant]
  2. LISINOPRIL [Concomitant]
     Dates: start: 20100405
  3. PHENAZOPYRIDINE HCL TAB [Concomitant]
  4. ALLOPURINOL [Concomitant]
  5. PHENYTOIN SODIUM [Concomitant]
     Dates: start: 20111107
  6. FOLIC ACID [Concomitant]
     Dates: start: 20050720
  7. ALBUTEROL SULFATE [Concomitant]
     Dosage: 2.5 MG/3 ML(0.083%) QID AS NEEDED
  8. ASPIRIN [Concomitant]
     Dates: start: 20040422
  9. NEURONTIN [Concomitant]
     Dates: start: 20111107
  10. NUVIGIL [Concomitant]
  11. DILANTIN [Concomitant]
     Dates: start: 20111107
  12. PLAVIX [Concomitant]
  13. METAMUCIL PSYLLIUM [Concomitant]
  14. MULTI-VITAMIN [Concomitant]
  15. ONDANSETRON [Concomitant]
     Dosage: 4 MG AS NEEDED
  16. VITAMIN D [Concomitant]
     Dosage: 2000 UNIT  ONCE A DAY
  17. VIMPAT [Suspect]
     Dates: start: 20091130
  18. VITAMIN D2 [Concomitant]
     Dosage: 1000 UNIT TWO CAPSULES ONCE A DAY

REACTIONS (4)
  - HEAD INJURY [None]
  - DEATH [None]
  - DEEP VEIN THROMBOSIS [None]
  - CONVULSION [None]
